FAERS Safety Report 9202417 (Version 1)
Quarter: 2013Q2

REPORT INFORMATION
  Report Type: Spontaneous
  Country: US (occurrence: US)
  Receive Date: 20130401
  Receipt Date: 20130401
  Transmission Date: 20140414
  Serious: No
  Sender: FDA-Public Use
  Company Number: US-PFIZER INC-2013102597

PATIENT
  Age: 58 Year
  Sex: Male
  Weight: 83.9 kg

DRUGS (8)
  1. CELEBREX [Suspect]
     Indication: POST PROCEDURAL COMPLICATION
     Dosage: 200 MG, 1X/DAY
     Route: 048
     Dates: start: 20130321, end: 20130327
  2. LISINOPRIL W/HYDROCHLOROTHIAZIDE [Concomitant]
     Indication: HYPERTENSION
     Dosage: UNK
  3. AMLODIPINE [Concomitant]
     Indication: HYPERTENSION
     Dosage: UNK
  4. ZANTAC [Concomitant]
     Indication: GASTROOESOPHAGEAL REFLUX DISEASE
     Dosage: UNK
  5. PRAVACHOL [Concomitant]
     Indication: BLOOD CHOLESTEROL INCREASED
     Dosage: UNK
  6. FLEXERIL [Concomitant]
     Indication: MUSCLE SPASMS
     Dosage: UNK
  7. OXYCONTIN [Concomitant]
     Indication: PAIN
     Dosage: UNK, 2X/DAY
  8. COUMADIN [Concomitant]
     Dosage: UNK

REACTIONS (7)
  - Hypersensitivity [Unknown]
  - Post procedural complication [Recovering/Resolving]
  - Pruritus [Recovering/Resolving]
  - Burning sensation [Recovering/Resolving]
  - Local swelling [Recovering/Resolving]
  - Erythema [Recovering/Resolving]
  - Skin irritation [Recovering/Resolving]
